FAERS Safety Report 8395292-0 (Version None)
Quarter: 2012Q2

REPORT INFORMATION
  Report Type: 
  Country: None (occurrence: None)
  Receive Date: 20120530
  Receipt Date: 20120522
  Transmission Date: 20120825
  Serious: Yes (Hospitalization)
  Sender: FDA-Public Use
  Company Number: JP-PFIZER INC-2012106657

PATIENT
  Sex: Female

DRUGS (2)
  1. ATORVASTATIN [Suspect]
     Dosage: UNK
     Route: 048
  2. CORTICOSTEROID NOS [Concomitant]
     Indication: MICROSCOPIC POLYANGIITIS

REACTIONS (1)
  - MICROSCOPIC POLYANGIITIS [None]
